FAERS Safety Report 6061930-0 (Version None)
Quarter: 2009Q1

REPORT INFORMATION
  Report Type: 
  Country: None (occurrence: None)
  Receive Date: 20090202
  Receipt Date: 20090127
  Transmission Date: 20090719
  Serious: Yes (Death, Other)
  Sender: FDA-Public Use
  Company Number: PHEH2009US01172

PATIENT
  Sex: Male

DRUGS (8)
  1. ZOMETA [Suspect]
     Indication: METASTASES TO BONE
     Dosage: UNK, UNK
  2. PREDNISONE [Concomitant]
  3. METHYLPREDNISOLONE [Concomitant]
  4. NOVOCAIN [Concomitant]
  5. RADIATION THERAPY [Concomitant]
  6. CHEMOTHERAPEUTICS NOS [Concomitant]
  7. INTERFERON [Concomitant]
  8. VITAMINS [Concomitant]

REACTIONS (34)
  - ABSCESS [None]
  - ANAEMIA [None]
  - BONE PAIN [None]
  - BREATH ODOUR [None]
  - DENTAL CARIES [None]
  - DISEASE PROGRESSION [None]
  - FRACTURE [None]
  - FUNGAL INFECTION [None]
  - GINGIVAL BLEEDING [None]
  - GINGIVAL INFECTION [None]
  - GINGIVITIS [None]
  - HIP ARTHROPLASTY [None]
  - HYPERCALCAEMIA [None]
  - HYPERTENSION [None]
  - IMMUNE SYSTEM DISORDER [None]
  - IMPAIRED HEALING [None]
  - INFECTION [None]
  - JAW DISORDER [None]
  - LEUKOPENIA [None]
  - LOOSE TOOTH [None]
  - MASTICATION DISORDER [None]
  - METASTASES TO BONE [None]
  - NEPHRECTOMY [None]
  - ORAL PAIN [None]
  - OSTEONECROSIS [None]
  - PAIN IN JAW [None]
  - PANCREATITIS [None]
  - PANCYTOPENIA [None]
  - PURULENT DISCHARGE [None]
  - RENAL CANCER [None]
  - RENAL IMPAIRMENT [None]
  - SURGERY [None]
  - TOOTH INFECTION [None]
  - TOOTH LOSS [None]
